FAERS Safety Report 12526534 (Version 3)
Quarter: 2016Q3

REPORT INFORMATION
  Report Type: Report from Study
  Country: KR (occurrence: KR)
  Receive Date: 20160705
  Receipt Date: 20160729
  Transmission Date: 20161109
  Serious: Yes (Life-Threatening, Hospitalization, Other)
  Sender: FDA-Public Use
  Company Number: PHHY2013KR019027

PATIENT
  Sex: Male

DRUGS (3)
  1. GLIVEC [Suspect]
     Active Substance: IMATINIB MESYLATE
     Dosage: 400 MG, QD
     Route: 048
     Dates: start: 201409
  2. GLIVEC [Suspect]
     Active Substance: IMATINIB MESYLATE
     Dosage: 600 MG, QD
     Route: 048
     Dates: start: 201404, end: 201408
  3. GLIVEC [Suspect]
     Active Substance: IMATINIB MESYLATE
     Indication: CHRONIC MYELOID LEUKAEMIA
     Dosage: 400 MG, QD
     Route: 048
     Dates: start: 20050506, end: 201404

REACTIONS (10)
  - Dizziness [Not Recovered/Not Resolved]
  - Suicide attempt [Recovering/Resolving]
  - Depression suicidal [Recovering/Resolving]
  - Diarrhoea [Not Recovered/Not Resolved]
  - Eating disorder [Unknown]
  - Parkinson^s disease [Not Recovered/Not Resolved]
  - Gastrointestinal disorder [Unknown]
  - Headache [Not Recovered/Not Resolved]
  - Gait disturbance [Unknown]
  - Dyspepsia [Not Recovered/Not Resolved]

NARRATIVE: CASE EVENT DATE: 2011
